FAERS Safety Report 14159455 (Version 1)
Quarter: 2017Q4

REPORT INFORMATION
  Report Type: Spontaneous
  Country: FR (occurrence: FR)
  Receive Date: 20171106
  Receipt Date: 20171106
  Transmission Date: 20180321
  Serious: Yes (Death)
  Sender: FDA-Public Use
  Company Number: FR-ACCORD-060691

PATIENT
  Age: 71 Year
  Sex: Male

DRUGS (5)
  1. ZOPHREN [Concomitant]
     Active Substance: ONDANSETRON
     Route: 048
     Dates: start: 20170825
  2. METHYLPREDNISOLONE. [Concomitant]
     Active Substance: METHYLPREDNISOLONE
     Route: 042
     Dates: start: 20170825
  3. OXALIPLATIN ACCORD [Suspect]
     Active Substance: OXALIPLATIN
     Indication: PANCREATIC NEOPLASM
     Route: 042
     Dates: start: 20170811, end: 20170825
  4. FLUOROURACIL ACCORD [Suspect]
     Active Substance: FLUOROURACIL
     Indication: PANCREATIC NEOPLASM
     Dosage: DAY 2 BY 48 HOURS OF CONTINUOUS INFUSION VIA A PORTABLE INFUSION PUMP AT 4800 MG UNTIL 27-AUG-2017
     Route: 042
     Dates: start: 20170811, end: 20170827
  5. ELVORINE [Concomitant]
     Active Substance: LEUCOVORIN CALCIUM
     Route: 042
     Dates: start: 20170825

REACTIONS (2)
  - Cardio-respiratory arrest [Fatal]
  - Off label use [Unknown]
